FAERS Safety Report 8249687-6 (Version None)
Quarter: 2012Q1

REPORT INFORMATION
  Report Type: 
  Country: None (occurrence: None)
  Receive Date: 20120316
  Receipt Date: 20110111
  Transmission Date: 20120608
  Serious: Yes (Other)
  Sender: FDA-Public Use
  Company Number: PHHY2011US02986

PATIENT
  Age: 77 Year
  Sex: Male

DRUGS (4)
  1. PLENDIL [Concomitant]
  2. LOTENSIN [Concomitant]
  3. VIACTIV (CALCIUM, COLECALCIFEROL) [Concomitant]
  4. TEKTURNA [Suspect]
     Dosage: 200 MG, QD, ORAL
     Route: 048

REACTIONS (1)
  - BLOOD PRESSURE FLUCTUATION [None]
